FAERS Safety Report 6616991-4 (Version None)
Quarter: 2010Q1

REPORT INFORMATION
  Report Type: 
  Country: None (occurrence: None)
  Receive Date: 20100301
  Receipt Date: 20100202
  Transmission Date: 20100710
  Serious: Yes (Disabling)
  Sender: FDA-Public Use
  Company Number: 512812

PATIENT
  Age: 13 Year
  Sex: Male
  Weight: 49.3 kg

DRUGS (2)
  1. METHOTREXATE [Suspect]
     Indication: ARTHRITIS
     Dosage: 12.5 MG, 1 WEEK, SUBCUTANEOUS
     Route: 058
     Dates: start: 20051123, end: 20071030
  2. (ETANERCEPT) [Concomitant]

REACTIONS (2)
  - AORTIC VALVE INCOMPETENCE [None]
  - CARDIOVASCULAR DISORDER [None]
